FAERS Safety Report 5729022-5 (Version None)
Quarter: 2008Q2

REPORT INFORMATION
  Report Type: 
  Country: None (occurrence: None)
  Receive Date: 20080505
  Receipt Date: 20080505
  Transmission Date: 20081010
  Serious: Yes (Disabling, Other)
  Sender: FDA-Public Use
  Company Number: None

PATIENT
  Sex: Male
  Weight: 80.7403 kg

DRUGS (1)
  1. LEVAQUIN [Suspect]
     Indication: SINUSITIS
     Dosage: 500 MG  1 DAILY  ORAL
     Route: 048
     Dates: start: 20080307, end: 20080314

REACTIONS (3)
  - ASTHENIA [None]
  - MOBILITY DECREASED [None]
  - TENDONITIS [None]
